FAERS Safety Report 14107274 (Version 1)
Quarter: 2017Q4

REPORT INFORMATION
  Report Type: Spontaneous
  Country: US (occurrence: US)
  Receive Date: 20171019
  Receipt Date: 20171019
  Transmission Date: 20180321
  Serious: Yes (Life-Threatening)
  Sender: FDA-Public Use
  Company Number: US-FRESENIUS KABI-FK201708745

PATIENT
  Age: 16 Year
  Sex: Male

DRUGS (3)
  1. DIMETHYL SULFOXIDE. [Suspect]
     Active Substance: DIMETHYL SULFOXIDE
     Indication: THERAPEUTIC PROCEDURE
     Route: 065
  2. LABETALOL [Suspect]
     Active Substance: LABETALOL\LABETALOL HYDROCHLORIDE
     Indication: TACHYCARDIA
     Route: 065
  3. ESMOLOL [Suspect]
     Active Substance: ESMOLOL HYDROCHLORIDE
     Indication: TACHYCARDIA
     Route: 065

REACTIONS (2)
  - Trigemino-cardiac reflex [Recovered/Resolved]
  - Pulseless electrical activity [Recovered/Resolved]
